FAERS Safety Report 8121634-7 (Version None)
Quarter: 2012Q1

REPORT INFORMATION
  Report Type: 
  Country: None (occurrence: None)
  Receive Date: 20120208
  Receipt Date: 20120208
  Transmission Date: 20120608
  Serious: No
  Sender: FDA-Public Use
  Company Number: None

PATIENT
  Age: 44 Year
  Sex: Female
  Weight: 56.699 kg

DRUGS (1)
  1. AZO YEAST [Suspect]
     Indication: FUNGAL INFECTION
     Dosage: 1 TABLET
     Route: 048
     Dates: start: 20120206, end: 20120206

REACTIONS (7)
  - PHARYNGEAL DISORDER [None]
  - HEADACHE [None]
  - PARAESTHESIA ORAL [None]
  - ABDOMINAL PAIN UPPER [None]
  - OESOPHAGEAL DISORDER [None]
  - PARAESTHESIA [None]
  - PARAESTHESIA OF GENITAL FEMALE [None]
